FAERS Safety Report 4632900-1 (Version None)
Quarter: 2005Q2

REPORT INFORMATION
  Report Type: 
  Country: None (occurrence: None)
  Receive Date: 20050325
  Receipt Date: 20041217
  Transmission Date: 20051028
  Serious: No
  Sender: FDA-Public Use
  Company Number: USA031254819

PATIENT
  Age: 80 Year
  Sex: Female

DRUGS (12)
  1. FORTEO [Suspect]
     Indication: OSTEOPOROSIS
     Dosage: 20 UG/1 DAY
     Dates: start: 20031001
  2. PLAVIX [Concomitant]
  3. MULTIVITAMIN [Concomitant]
  4. CALTRATE 600 PLUS VITAMIN D [Concomitant]
  5. MULTI-VITAMIN [Concomitant]
  6. DIOVAN [Concomitant]
  7. METOPROLOL TARTRATE [Concomitant]
  8. PLAVIX [Concomitant]
  9. LIPITOR [Concomitant]
  10. NEXIUM [Concomitant]
  11. SYNTHROID [Concomitant]
  12. ASPIRIN [Concomitant]

REACTIONS (4)
  - BONE DENSITY DECREASED [None]
  - FALL [None]
  - INJECTION SITE ERYTHEMA [None]
  - INJECTION SITE HAEMORRHAGE [None]
